FAERS Safety Report 9498746 (Version 2)
Quarter: 2013Q3

REPORT INFORMATION
  Report Type: Report from Study
  Country: DE (occurrence: DE)
  Receive Date: 20130904
  Receipt Date: 20130917
  Transmission Date: 20140515
  Serious: Yes (Hospitalization)
  Sender: FDA-Public Use
  Company Number: DE-PFIZER INC-2013245265

PATIENT
  Age: 80 Year
  Sex: Male
  Weight: 83 kg

DRUGS (3)
  1. TEMSIROLIMUS [Suspect]
     Dosage: 25 MG, 1X/DAY
     Route: 042
     Dates: start: 20120821
  2. TEMSIROLIMUS [Suspect]
     Dosage: 20 MG, 1X/DAY
     Route: 042
     Dates: start: 20120918
  3. TEMSIROLIMUS [Suspect]
     Dosage: 15 MG, 1X/DAY
     Route: 042
     Dates: start: 20121010, end: 20121106

REACTIONS (1)
  - Pyrexia [Recovered/Resolved with Sequelae]
